FAERS Safety Report 19919512 (Version 2)
Quarter: 2021Q4

REPORT INFORMATION
  Report Type: Spontaneous
  Country: US (occurrence: None)
  Receive Date: 20211005
  Receipt Date: 20211104
  Transmission Date: 20220303
  Serious: Yes (Hospitalization)
  Sender: FDA-Public Use
  Company Number: US-UNICHEM PHARMACEUTICALS (USA) INC-UCM202109-000914

PATIENT
  Age: 19 Month
  Sex: Male

DRUGS (2)
  1. CLONIDINE HYDROCHLORIDE [Suspect]
     Active Substance: CLONIDINE HYDROCHLORIDE
     Indication: Accidental exposure to product by child
     Dosage: 0.1 MG
  2. BUSPIRONE HYDROCHLORIDE [Suspect]
     Active Substance: BUSPIRONE HYDROCHLORIDE
     Indication: Accidental exposure to product by child
     Dosage: 15 MG

REACTIONS (3)
  - Mental status changes [Recovered/Resolved]
  - Gait disturbance [Recovered/Resolved]
  - Accidental exposure to product by child [Unknown]
